FAERS Safety Report 25975860 (Version 1)
Quarter: 2025Q4

REPORT INFORMATION
  Report Type: Report from Study
  Country: US (occurrence: US)
  Receive Date: 20251029
  Receipt Date: 20251029
  Transmission Date: 20260118
  Serious: Yes (Other)
  Sender: ROCHE
  Company Number: US-ROCHE-10000418351

PATIENT
  Age: 63 Year
  Sex: Male

DRUGS (2)
  1. VENCLEXTA [Suspect]
     Active Substance: VENETOCLAX
     Indication: Chronic lymphocytic leukaemia
     Dosage: TAKE 4 TABLETS BY MOUTH EVERY MORNING (DO NOT START BEFORE 8/7/25)
     Route: 048
     Dates: start: 20250708
  2. GAZYVA [Suspect]
     Active Substance: OBINUTUZUMAB
     Indication: Product used for unknown indication
     Dosage: CYCLES 2-6: INFUSE 1000MG INTRAVENOUSLY ON DAY 1 OF A 28 DAY TREATMENT CYCLE FOR 5 DOSES
     Route: 042

REACTIONS (1)
  - Skin cancer [Recovering/Resolving]
